FAERS Safety Report 6432418-X (Version None)
Quarter: 2009Q4

REPORT INFORMATION
  Report Type: 
  Country: None (occurrence: None)
  Receive Date: 20091109
  Receipt Date: 20091029
  Transmission Date: 20100525
  Serious: Yes (Other)
  Sender: FDA-Public Use
  Company Number: CHPA2009US21611

PATIENT
  Age: 43 Year
  Sex: Female

DRUGS (2)
  1. VOLTAREN [Suspect]
     Indication: SCAR
     Dosage: 4 G, QID
     Route: 061
     Dates: start: 20090922
  2. VOLTAREN [Suspect]
     Dosage: 2 G, QID
     Route: 061

REACTIONS (8)
  - DRUG ADMINISTERED AT INAPPROPRIATE SITE [None]
  - ERYTHEMA [None]
  - HYPERAESTHESIA [None]
  - OEDEMA PERIPHERAL [None]
  - SKIN BURNING SENSATION [None]
  - SKIN EXFOLIATION [None]
  - SKIN REACTION [None]
  - SWELLING FACE [None]
